FAERS Safety Report 4389266-4 (Version None)
Quarter: 2004Q2

REPORT INFORMATION
  Report Type: 
  Country: None (occurrence: None)
  Receive Date: 20040628
  Receipt Date: 20040616
  Transmission Date: 20050107
  Serious: Yes (Hospitalization)
  Sender: FDA-Public Use
  Company Number: 2004040606

PATIENT
  Age: 71 Year
  Sex: Male

DRUGS (6)
  1. AMLODIPINE [Suspect]
     Indication: ILL-DEFINED DISORDER
     Dosage: 5 MG (1 IN 1 D) ORAL
     Route: 048
  2. CARBAMAZEPINE [Suspect]
     Indication: EPILEPSY
     Dosage: 400 MG (200 MG, 2 IN 1 D) ORAL
     Route: 048
  3. ACENOCOUMAROL (ACENOCOUMAROL) [Suspect]
     Indication: ILL-DEFINED DISORDER
     Dosage: ORAL
     Route: 048
  4. CLOBAZAM (CLOBAZAM) [Suspect]
     Indication: ILL-DEFINED DISORDER
     Dosage: 15 MG (5 MG, 3 IN 1 D) ORAL
     Route: 048
  5. DIGOXIN [Suspect]
     Indication: ATRIAL FIBRILLATION
     Dosage: 0.25 MG (1 IN 1 D) ORAL
     Route: 048
  6. MIANSERIN HYDROCHLORIDE (MIANSERIN HYDROCHLORIDE) [Suspect]
     Indication: DEPRESSION
     Dosage: 10 MG (10 MG, 1 IN 1 D) ORAL
     Route: 048

REACTIONS (2)
  - BLOOD UREA DECREASED [None]
  - HYPONATRAEMIA [None]
